FAERS Safety Report 6489871-5 (Version None)
Quarter: 2009Q4

REPORT INFORMATION
  Report Type: 
  Country: None (occurrence: None)
  Receive Date: 20091210
  Receipt Date: 20091210
  Transmission Date: 20100525
  Serious: Yes (Other)
  Sender: FDA-Public Use
  Company Number: None

PATIENT
  Age: 16 Year
  Sex: Male
  Weight: 79.3795 kg

DRUGS (4)
  1. DEXTROMETHORPHAN HYDROBROMIDE [Suspect]
     Indication: EUPHORIC MOOD
  2. ROBITUSSIN [Suspect]
  3. VICKS FORMULA 44 (DEXTROMETHORPHAN) [Suspect]
  4. CORICIDIN [Suspect]

REACTIONS (1)
  - INTENTIONAL DRUG MISUSE [None]
